FAERS Safety Report 11003163 (Version 1)
Quarter: 2015Q2

REPORT INFORMATION
  Report Type: Spontaneous
  Country: US (occurrence: None)
  Receive Date: 20150401
  Receipt Date: 20150401
  Transmission Date: 20150821
  Serious: No
  Sender: FDA-Public Use
  Company Number: AXC-2014-000804

PATIENT
  Weight: 34 kg

DRUGS (1)
  1. VIOKACE [Suspect]
     Active Substance: PANCRELIPASE AMYLASE\PANCRELIPASE LIPASE\PANCRELIPASE PROTEASE
     Indication: PRODUCT USED FOR UNKNOWN INDICATION
     Dosage: 93960 USP, QD FOR THE OVERNIGHT FEED
     Route: 051

REACTIONS (1)
  - Wrong technique in drug usage process [None]
